FAERS Safety Report 9636389 (Version 2)
Quarter: 2013Q4

REPORT INFORMATION
  Report Type: Spontaneous
  Country: DE (occurrence: DE)
  Receive Date: 20131021
  Receipt Date: 20131021
  Transmission Date: 20140711
  Serious: Yes (Hospitalization, Other)
  Sender: FDA-Public Use
  Company Number: DE-UCBSA-097138

PATIENT
  Age: 34 Year
  Sex: Female
  Weight: 61 kg

DRUGS (3)
  1. CIMZIA [Suspect]
     Indication: RHEUMATOID ARTHRITIS
     Route: 058
     Dates: start: 20130411
  2. CIMZIA [Suspect]
     Indication: RHEUMATOID ARTHRITIS
     Route: 058
     Dates: start: 20120411, end: 201212
  3. PREDNISOLONE [Concomitant]
     Dosage: 10 MG
     Route: 048

REACTIONS (4)
  - Premature delivery [Unknown]
  - Haemorrhage [Recovered/Resolved]
  - Pregnancy [Recovered/Resolved]
  - Breast feeding [Unknown]
